FAERS Safety Report 20087356 (Version 3)
Quarter: 2022Q2

REPORT INFORMATION
  Report Type: Spontaneous
  Country: US (occurrence: US)
  Receive Date: 20211118
  Receipt Date: 20220525
  Transmission Date: 20220721
  Serious: No
  Sender: FDA-Public Use
  Company Number: US-LUPIN PHARMACEUTICALS INC.-2021-22473

PATIENT
  Sex: Female

DRUGS (1)
  1. ALBUTEROL SULFATE [Suspect]
     Active Substance: ALBUTEROL SULFATE
     Indication: Product used for unknown indication
     Dosage: UNK, QID, (4 TIMES DAILY AS NEEDED)
     Dates: start: 2021

REACTIONS (4)
  - Product substitution issue [Unknown]
  - Device delivery system issue [Unknown]
  - Device deposit issue [Unknown]
  - No adverse event [Unknown]
